FAERS Safety Report 7637834-6 (Version None)
Quarter: 2011Q3

REPORT INFORMATION
  Report Type: 
  Country: None (occurrence: None)
  Receive Date: 20110713
  Receipt Date: 20110629
  Transmission Date: 20111222
  Serious: Yes (Hospitalization)
  Sender: FDA-Public Use
  Company Number: 2011PROUSA00399

PATIENT
  Age: 68 Year
  Sex: Male
  Weight: 76.2 kg

DRUGS (10)
  1. DENOSUMAB (DENOSUMAB) [Concomitant]
  2. LEUPROLIDE ACETATE (LUPROELIN ACETATE) [Concomitant]
  3. OXYCODONE / ACETAMINOPHEN (OXYCODONE HYDROCHLORIDE, PARACETAMOL) [Concomitant]
  4. CALCIUM + VITAMIN D /01483701/ (CALCIUM, COLECALIFEROL) [Concomitant]
  5. LORAZEPAM [Concomitant]
  6. PROVENGE [Suspect]
     Indication: PROSTATE CANCER METASTATIC
     Dosage: 250 ML, SINGLE, INTRAVENOUS
     Route: 042
     Dates: start: 20110603, end: 20110603
  7. TERAZOSIN HCL [Concomitant]
  8. DOCUSATE CALCIUM (DOCUSATE CALCIUM) [Concomitant]
  9. DIPHENOXYLATE HCL AND ATROPINE SULFATE (ATROPINE SULFATE, DIPHENOXYLAT [Concomitant]
  10. ONDANSETRON [Concomitant]

REACTIONS (8)
  - DEVICE RELATED SEPSIS [None]
  - ARTHRALGIA [None]
  - MENINGEAL NEOPLASM [None]
  - STAPHYLOCOCCAL SEPSIS [None]
  - HYPONATRAEMIA [None]
  - TUMOUR COMPRESSION [None]
  - VERTEBRAL FORAMINAL STENOSIS [None]
  - NERVE ROOT COMPRESSION [None]
